FAERS Safety Report 6746266-4 (Version None)
Quarter: 2010Q2

REPORT INFORMATION
  Report Type: 
  Country: None (occurrence: None)
  Receive Date: 20100528
  Receipt Date: 20100205
  Transmission Date: 20101027
  Serious: No
  Sender: FDA-Public Use
  Company Number: US-ASTRAZENECA-2010SE05419

PATIENT
  Age: 69 Year
  Sex: Female

DRUGS (1)
  1. PRILOSEC [Suspect]
     Route: 048

REACTIONS (7)
  - ABDOMINAL DISCOMFORT [None]
  - FEAR [None]
  - INSOMNIA [None]
  - MUSCLE TIGHTNESS [None]
  - NERVOUSNESS [None]
  - VAGINAL DISCHARGE [None]
  - VULVOVAGINAL DISCOMFORT [None]
